FAERS Safety Report 5911477-4 (Version None)
Quarter: 2008Q4

REPORT INFORMATION
  Report Type: 
  Country: None (occurrence: None)
  Receive Date: 20081002
  Receipt Date: 20080627
  Transmission Date: 20090506
  Serious: Yes (Other)
  Sender: FDA-Public Use
  Company Number: A-US2008-20575

PATIENT
  Age: 55 Year
  Sex: Female

DRUGS (18)
  1. TRACLEER [Suspect]
     Indication: PULMONARY HYPERTENSION
     Dosage: 62.5 MG, BID, ORAL
     Route: 048
     Dates: start: 20020801, end: 20080418
  2. VANCOMYCIN [Suspect]
  3. ZOSYN [Suspect]
  4. CELLCEPT [Concomitant]
  5. REVATIO [Concomitant]
  6. PREDNISONE [Concomitant]
  7. PLAQUENIL [Concomitant]
  8. BUMEX [Concomitant]
  9. ALDACTONE [Concomitant]
  10. COUMADIN [Concomitant]
  11. VIVELLE-DOT [Concomitant]
  12. LANOXIN [Concomitant]
  13. SINGULAIR [Concomitant]
  14. PROTONIX [Concomitant]
  15. KEFLEX [Concomitant]
  16. METAMUCIL-2 [Concomitant]
  17. OXYGEN (OXYGEN) [Concomitant]
  18. VITAMIN D [Concomitant]

REACTIONS (17)
  - ALLERGY TO ARTHROPOD STING [None]
  - ARTHRALGIA [None]
  - CELLULITIS [None]
  - CHEST DISCOMFORT [None]
  - CONDITION AGGRAVATED [None]
  - DERMATITIS CONTACT [None]
  - DRUG HYPERSENSITIVITY [None]
  - DRUG INTERACTION [None]
  - FATIGUE [None]
  - INTERNATIONAL NORMALISED RATIO INCREASED [None]
  - LUPUS HEPATITIS [None]
  - PAROTITIS [None]
  - PLEURISY [None]
  - PROTHROMBIN LEVEL INCREASED [None]
  - SALIVARY GLAND CALCULUS [None]
  - SWELLING [None]
  - SYSTEMIC LUPUS ERYTHEMATOSUS [None]
